FAERS Safety Report 21245705 (Version 1)
Quarter: 2022Q3

REPORT INFORMATION
  Report Type: Report from Study
  Country: NL (occurrence: NL)
  Receive Date: 20220824
  Receipt Date: 20220824
  Transmission Date: 20221026
  Serious: Yes (Other)
  Sender: FDA-Public Use
  Company Number: NL-PFIZER INC-202200306306

PATIENT
  Age: 4 Day
  Sex: Male

DRUGS (9)
  1. PREDNISONE [Suspect]
     Active Substance: PREDNISONE
     Indication: Haemangioma-thrombocytopenia syndrome
     Dosage: 0.4 MILLIGRAM ((0.4 MG/KG/D))
     Route: 065
  2. PREDNISONE [Suspect]
     Active Substance: PREDNISONE
     Dosage: 0.6 MILLIGRAM (0.6 MG/KG/D)
     Route: 065
  3. PREDNISONE [Suspect]
     Active Substance: PREDNISONE
     Dosage: 1 MILLIGRAM/KILOGRAM, ONCE A DAY (STARTED AT DOL3)
     Route: 065
  4. COTRIMOXAZOLE [Suspect]
     Active Substance: SULFAMETHOXAZOLE\TRIMETHOPRIM
     Indication: Haemangioma-thrombocytopenia syndrome
     Dosage: UNK 45 WEEKS
     Route: 065
  5. SIROLIMUS [Suspect]
     Active Substance: SIROLIMUS
     Indication: Haemangioma-thrombocytopenia syndrome
     Dosage: 0.2 MILLIGRAM/SQ. METER, EVERY OTHER DAY(PER 48 HOURS)
     Route: 065
  6. SIROLIMUS [Suspect]
     Active Substance: SIROLIMUS
     Dosage: UNK (LOW-DOSE)
     Route: 065
  7. SIROLIMUS [Suspect]
     Active Substance: SIROLIMUS
     Dosage: 0.15 MILLIGRAM (PER 48 HOUR)/ (0.33 MG/M2/24 H)
     Route: 065
  8. FLUCLOXACILLIN [Concomitant]
     Active Substance: FLUCLOXACILLIN
     Indication: Sepsis
     Dosage: UNK
     Route: 065
  9. GENTAMICIN [Concomitant]
     Active Substance: GENTAMICIN
     Indication: Sepsis
     Dosage: UNK
     Route: 065

REACTIONS (6)
  - Urinary tract infection neonatal [Unknown]
  - Gastroenteritis viral [Unknown]
  - Hepatic enzyme increased [Unknown]
  - Blood alkaline phosphatase increased [Unknown]
  - Drug ineffective [Unknown]
  - Off label use [Unknown]
